FAERS Safety Report 5085045-3 (Version None)
Quarter: 2006Q3

REPORT INFORMATION
  Report Type: 
  Country: None (occurrence: None)
  Receive Date: 20060815
  Receipt Date: 20060801
  Transmission Date: 20061208
  Serious: Yes (Death)
  Sender: FDA-Public Use
  Company Number: US200608000144

PATIENT
  Age: 43 Year
  Sex: Male

DRUGS (10)
  1. HUMALOG [Suspect]
     Indication: DIABETES MELLITUS INSULIN-DEPENDENT
  2. LANTUS [Concomitant]
  3. TOPROL-XL [Concomitant]
  4. METHADONE HCL [Concomitant]
  5. XANAX [Concomitant]
  6. PROTONIX [Concomitant]
  7. LOPRESSOR [Concomitant]
  8. CREON [Concomitant]
  9. CARAFATE [Concomitant]
  10. ABILIFY [Concomitant]

REACTIONS (1)
  - ASPIRATION [None]
